FAERS Safety Report 10504101 (Version 2)
Quarter: 2014Q4

REPORT INFORMATION
  Report Type: Spontaneous
  Country: US (occurrence: None)
  Receive Date: 20141006
  Receipt Date: 20141118
  Transmission Date: 20150528
  Serious: Yes (Other)
  Sender: FDA-Public Use
  Company Number: JPI-P-032315

PATIENT
  Age: 54 Year
  Sex: Male
  Weight: 90.9 kg

DRUGS (7)
  1. ADVAIR HFA (FLUTICASONE PROPIONATE, SALMETEROL XINAFOATE) [Concomitant]
  2. XYREM [Suspect]
     Active Substance: SODIUM OXYBATE
     Indication: NARCOLEPSY
     Route: 048
     Dates: start: 200608, end: 2006
  3. TRAMADOL (TRAMADOL HYDROCHLORIDE) [Concomitant]
     Active Substance: TRAMADOL HYDROCHLORIDE
  4. LIPITOR [Concomitant]
     Active Substance: ATORVASTATIN CALCIUM
  5. ANTIHYPERTENSIVES [Concomitant]
     Active Substance: UNSPECIFIED INGREDIENT
  6. PROVIGIL [Concomitant]
     Active Substance: MODAFINIL
  7. CELEBREX [Concomitant]
     Active Substance: CELECOXIB

REACTIONS (3)
  - Arthropathy [None]
  - Knee arthroplasty [None]
  - Acute respiratory distress syndrome [None]

NARRATIVE: CASE EVENT DATE: 2002
